FAERS Safety Report 7088920-3 (Version None)
Quarter: 2010Q4

REPORT INFORMATION
  Report Type: 
  Country: None (occurrence: None)
  Receive Date: 20101108
  Receipt Date: 20101028
  Transmission Date: 20110411
  Serious: Yes (Death)
  Sender: FDA-Public Use
  Company Number: PHHY2010MX73424

PATIENT
  Age: 92 Year
  Sex: Female

DRUGS (1)
  1. GENTEAL (NVO) [Suspect]
     Indication: DRY EYE
     Dosage: UNK
     Route: 047
     Dates: start: 20001001

REACTIONS (5)
  - BLOOD PRESSURE FLUCTUATION [None]
  - FALL [None]
  - FRACTURE [None]
  - GASTRIC DISORDER [None]
  - LUNG DISORDER [None]
